FAERS Safety Report 19285528 (Version 1)
Quarter: 2021Q2

REPORT INFORMATION
  Report Type: Spontaneous
  Country: GR (occurrence: GR)
  Receive Date: 20210521
  Receipt Date: 20210521
  Transmission Date: 20210717
  Serious: Yes (Other)
  Sender: FDA-Public Use
  Company Number: GR-SUN PHARMACEUTICAL INDUSTRIES LTD-2021R1-297055

PATIENT
  Age: 55 Year
  Sex: Female

DRUGS (6)
  1. CALCIUM AND VITAMIN D [Concomitant]
     Active Substance: CALCIUM\VITAMIN D
     Indication: DYSLIPIDAEMIA
     Dosage: UNK, DAILY (1000 MG/800 IU)
     Route: 065
  2. ETORICOXIB. [Suspect]
     Active Substance: ETORICOXIB
     Indication: OSTEOPOROSIS
     Dosage: 90 MILLIGRAM, DAILY
     Route: 065
     Dates: start: 2015
  3. PARACETAMOL [Suspect]
     Active Substance: ACETAMINOPHEN
     Indication: PAIN
     Dosage: UNK
     Route: 065
  4. EZETIMIBE. [Concomitant]
     Active Substance: EZETIMIBE
     Indication: DYSLIPIDAEMIA
     Dosage: 10 MILLIGRAM, DAILY
     Route: 065
  5. RISEDRONATE [Suspect]
     Active Substance: RISEDRONATE SODIUM
     Indication: OSTEOPOROSIS
     Dosage: UNK
     Route: 065
     Dates: start: 2015
  6. PITAVASTATIN. [Concomitant]
     Active Substance: PITAVASTATIN CALCIUM
     Indication: DYSLIPIDAEMIA
     Dosage: U2 MILLIGRAM, DAILY

REACTIONS (1)
  - Treatment failure [Unknown]
